FAERS Safety Report 6985323-4 (Version None)
Quarter: 2010Q3

REPORT INFORMATION
  Report Type: 
  Country: None (occurrence: None)
  Receive Date: 20100915
  Receipt Date: 20100814
  Transmission Date: 20110219
  Serious: No
  Sender: FDA-Public Use
  Company Number: US-PFIZER INC-2007080885

PATIENT
  Sex: Female
  Weight: 58.05 kg

DRUGS (11)
  1. CHANTIX [Suspect]
     Indication: SMOKING CESSATION THERAPY
     Dosage: 0.5 MG, DAILY
     Route: 048
     Dates: start: 20070101, end: 20070101
  2. LAXATIVES [Suspect]
     Indication: CONSTIPATION
     Dosage: 25 MG, UNK
     Dates: start: 20070901
  3. FENTANYL CITRATE [Concomitant]
  4. LYRICA [Concomitant]
  5. ACTIQ [Concomitant]
  6. ALPRAZOLAM [Concomitant]
  7. CITALOPRAM HYDROBROMIDE [Concomitant]
  8. TRAZODONE HCL [Concomitant]
  9. MULTI-VITAMINS [Concomitant]
  10. ESTROGEN NOS [Concomitant]
  11. ROXICODONE [Concomitant]
     Indication: PAIN MANAGEMENT
     Dosage: 30 MG, 4X/DAY
     Route: 048
     Dates: start: 20070101

REACTIONS (4)
  - CRYING [None]
  - NAUSEA [None]
  - THERAPEUTIC RESPONSE DELAYED [None]
  - VOMITING [None]
